FAERS Safety Report 5422196-5 (Version None)
Quarter: 2007Q3

REPORT INFORMATION
  Report Type: 
  Country: None (occurrence: None)
  Receive Date: 20070817
  Receipt Date: 20070803
  Transmission Date: 20080115
  Serious: Yes (Life-Threatening, Disabling, Other)
  Sender: FDA-Public Use
  Company Number: 2007P1000105

PATIENT
  Age: 7 Year
  Sex: Female

DRUGS (6)
  1. BUSULFAN (BUSULFAN) [Suspect]
     Indication: STEM CELL TRANSPLANT
     Dosage: 20 MG/KG; QD; IV
     Route: 042
     Dates: start: 20061204, end: 20061207
  2. CYCLOPHOSPHAMIDE [Concomitant]
  3. ETOPOSIDE [Concomitant]
  4. VALPROATE SODIUM [Concomitant]
  5. METHOTREXATE [Concomitant]
  6. TACROLIMUS [Concomitant]

REACTIONS (10)
  - BONE MARROW TRANSPLANT REJECTION [None]
  - BRONCHOPULMONARY ASPERGILLOSIS [None]
  - CYSTITIS HAEMORRHAGIC [None]
  - ERYTHEMA [None]
  - FLUSHING [None]
  - PIGMENTATION DISORDER [None]
  - STAPHYLOCOCCAL SEPSIS [None]
  - SWELLING [None]
  - VENOOCCLUSIVE LIVER DISEASE [None]
  - VOMITING [None]
